FAERS Safety Report 9766302 (Version 1)
Quarter: 2013Q4

REPORT INFORMATION
  Report Type: Spontaneous
  Country: US (occurrence: US)
  Receive Date: 20131217
  Receipt Date: 20131217
  Transmission Date: 20140711
  Serious: No
  Sender: FDA-Public Use
  Company Number: US-VIIV HEALTHCARE LIMITED-A1019265A

PATIENT
  Age: 46 Year
  Sex: Male

DRUGS (9)
  1. TRIZIVIR [Suspect]
     Indication: HIV INFECTION
     Route: 048
     Dates: start: 20130407, end: 20130407
  2. LEXIVA [Suspect]
  3. TRUVADA [Concomitant]
  4. NORVIR [Concomitant]
  5. UNKNOWN MEDICATION [Concomitant]
  6. TRILEPTAL [Concomitant]
  7. IMODIUM [Concomitant]
  8. PRILOSEC [Concomitant]
  9. VITAMIN D3 [Concomitant]

REACTIONS (2)
  - Medication error [Unknown]
  - Product quality issue [Unknown]
